FAERS Safety Report 5234208-2 (Version None)
Quarter: 2007Q1

REPORT INFORMATION
  Report Type: 
  Country: None (occurrence: None)
  Receive Date: 20070207
  Receipt Date: 20070124
  Transmission Date: 20070707
  Serious: Yes (Death)
  Sender: FDA-Public Use
  Company Number: 2007VX000043

PATIENT
  Age: 32 Year
  Sex: Male

DRUGS (12)
  1. DALMANE [Suspect]
     Indication: PAIN
  2. LORCET-HD [Suspect]
     Indication: PAIN
  3. TALWIN NX [Suspect]
     Indication: PAIN
  4. AMBIEN [Suspect]
     Indication: PAIN
  5. LORTAB [Suspect]
     Indication: PAIN
  6. NORCO [Suspect]
     Indication: PAIN
  7. VICODIN [Suspect]
     Indication: PAIN
  8. TEMAZEPAM [Suspect]
     Indication: PAIN
  9. RESTORIL [Suspect]
     Indication: PAIN
  10. LIDODERM [Suspect]
     Indication: PAIN
  11. LIDOCAINE [Suspect]
     Indication: PAIN
  12. ZONEGRAN [Concomitant]

REACTIONS (20)
  - ABNORMAL DREAMS [None]
  - ADRENAL HAEMORRHAGE [None]
  - AGGRESSION [None]
  - AMNESIA [None]
  - ANXIETY [None]
  - BRAIN OEDEMA [None]
  - COMPLETED SUICIDE [None]
  - CONFUSIONAL STATE [None]
  - DEPRESSION [None]
  - DISINHIBITION [None]
  - FALL [None]
  - GUN SHOT WOUND [None]
  - HALLUCINATION [None]
  - INJURY [None]
  - MOOD ALTERED [None]
  - NERVOUSNESS [None]
  - PULMONARY OEDEMA [None]
  - SUICIDAL IDEATION [None]
  - VISCERAL CONGESTION [None]
  - VISUAL DISTURBANCE [None]
